FAERS Safety Report 5305800-1 (Version None)
Quarter: 2007Q2

REPORT INFORMATION
  Report Type: 
  Country: None (occurrence: None)
  Receive Date: 20070423
  Receipt Date: 20070423
  Transmission Date: 20071010
  Serious: Yes (Other)
  Sender: FDA-Public Use
  Company Number: None

PATIENT
  Sex: Female
  Weight: 90.7194 kg

DRUGS (2)
  1. ACETAMINOPHEN AND HYDROCODONE DITARTRATE [Suspect]
     Indication: INTERVERTEBRAL DISC DISORDER
     Dosage: 10/500  1 PILL 5X/DAY  PO
     Route: 048
     Dates: start: 20070213, end: 20070221
  2. ACETAMINOPHEN AND HYDROCODONE DITARTRATE [Suspect]
     Indication: FIBROMYALGIA
     Dates: start: 20070301, end: 20070401

REACTIONS (1)
  - PRURITUS [None]
